FAERS Safety Report 7482951-7 (Version None)
Quarter: 2011Q2

REPORT INFORMATION
  Report Type: 
  Country: None (occurrence: None)
  Receive Date: 20110516
  Receipt Date: 20110328
  Transmission Date: 20111010
  Serious: No
  Sender: FDA-Public Use
  Company Number: US-BAYER-2011-028465

PATIENT
  Weight: 86 kg

DRUGS (8)
  1. LISINOPRIL [Concomitant]
  2. OSCAL [Concomitant]
  3. LIPITOR [Concomitant]
  4. ASPIRIN [Concomitant]
     Route: 048
  5. ONE-A-DAY [Concomitant]
     Dosage: BOTTLE COUNT 50S
     Route: 048
  6. GLYBURIDE [Concomitant]
  7. AVODART [Concomitant]
  8. ALEVE (CAPLET) [Suspect]
     Indication: ARTHRALGIA
     Dosage: BOTTLE COUNT 200S
     Route: 048

REACTIONS (1)
  - NO ADVERSE EVENT [None]
